FAERS Safety Report 10489644 (Version 1)
Quarter: 2014Q4

REPORT INFORMATION
  Report Type: Report from Study
  Country: IT (occurrence: IT)
  Receive Date: 20141002
  Receipt Date: 20141002
  Transmission Date: 20150528
  Serious: Yes (Other)
  Sender: FDA-Public Use
  Company Number: IT-AMGEN-ITASP2014074711

PATIENT
  Sex: Female

DRUGS (1)
  1. PROLIA [Suspect]
     Active Substance: DENOSUMAB
     Indication: OSTEOPOROSIS POSTMENOPAUSAL
     Dosage: UNK
     Route: 065

REACTIONS (17)
  - Hypertension [Unknown]
  - Weight decreased [Unknown]
  - Back pain [Unknown]
  - Diabetes mellitus [Unknown]
  - Activities of daily living impaired [Unknown]
  - Spinal deformity [Unknown]
  - Bone density abnormal [Unknown]
  - Dental operation [Unknown]
  - Premature menopause [Unknown]
  - Cerebrovascular disorder [Unknown]
  - Body height decreased [Unknown]
  - Osteoarthritis [Unknown]
  - Dyspnoea [Unknown]
  - Hypophagia [Unknown]
  - Painful respiration [Unknown]
  - Immobile [Unknown]
  - Asthenia [Unknown]
